FAERS Safety Report 5761740-5 (Version None)
Quarter: 2008Q2

REPORT INFORMATION
  Report Type: 
  Country: None (occurrence: None)
  Receive Date: 20080603
  Receipt Date: 20080520
  Transmission Date: 20081010
  Serious: Yes (Death, Hospitalization)
  Sender: FDA-Public Use
  Company Number: 2008AL005555

PATIENT
  Age: 79 Year
  Sex: Male
  Weight: 65.7716 kg

DRUGS (18)
  1. DIGOXIN [Suspect]
     Dosage: 0.125 MG, QD, PO
     Route: 048
     Dates: start: 20071201
  2. TERAZOSIN HCL [Concomitant]
  3. POTASSIUM CHLORIDE [Concomitant]
  4. WARFIN [Concomitant]
  5. CARVEDILOL [Concomitant]
  6. SPIRONOLACTO [Concomitant]
  7. SIMVASTATIN [Concomitant]
  8. CASODEX [Concomitant]
  9. ASPIRAN [Concomitant]
  10. LASIX [Concomitant]
  11. NEXIUM [Concomitant]
  12. METOCLOPRAMI [Concomitant]
  13. TEMAZEPAM [Concomitant]
  14. FERROUS [Concomitant]
  15. FINASTERIBE [Concomitant]
  16. LISINOPRIL [Concomitant]
  17. HYDROCODONE [Concomitant]
  18. SPIRUA [Concomitant]

REACTIONS (4)
  - CARDIAC FAILURE [None]
  - CEREBROVASCULAR ACCIDENT [None]
  - HEART RATE DECREASED [None]
  - HYPOTENSION [None]
